FAERS Safety Report 10021649 (Version 1)
Quarter: 2014Q1

REPORT INFORMATION
  Report Type: Spontaneous
  Country: US (occurrence: None)
  Receive Date: 20140318
  Receipt Date: 20140318
  Transmission Date: 20141002
  Serious: Yes (Disabling)
  Sender: FDA-Public Use
  Company Number: None

PATIENT
  Age: 45 Year
  Sex: Female
  Weight: 99.79 kg

DRUGS (1)
  1. PEG-3350 [Suspect]
     Indication: COLONOSCOPY
     Dates: start: 20140310, end: 20140310

REACTIONS (6)
  - Hypersensitivity [None]
  - Rash [None]
  - Cough [None]
  - Asthma exercise induced [None]
  - Pruritus [None]
  - Swelling [None]
